FAERS Safety Report 7289546-9 (Version None)
Quarter: 2011Q1

REPORT INFORMATION
  Report Type: 
  Country: None (occurrence: None)
  Receive Date: 20110213
  Receipt Date: 20110204
  Transmission Date: 20110831
  Serious: Yes (Other)
  Sender: FDA-Public Use
  Company Number: DE-BRISTOL-MYERS SQUIBB COMPANY-15542129

PATIENT
  Sex: Female
  Weight: 3 kg

DRUGS (1)
  1. ABILIFY [Suspect]
     Dosage: DRUG WITHDRAWN ON AN UNKNOWN DATE
     Route: 064
     Dates: start: 20090401

REACTIONS (2)
  - HYPOPHAGIA [None]
  - PREMATURE BABY [None]
